FAERS Safety Report 21296553 (Version 1)
Quarter: 2022Q3

REPORT INFORMATION
  Report Type: Spontaneous
  Country: JP (occurrence: JP)
  Receive Date: 20220906
  Receipt Date: 20220906
  Transmission Date: 20221027
  Serious: Yes (Other)
  Sender: FDA-Public Use
  Company Number: JP-KYOWAKIRIN-2022BKK013904

PATIENT

DRUGS (4)
  1. TOREMIFENE [Suspect]
     Active Substance: TOREMIFENE
     Indication: Hormone therapy
     Dosage: UNK(HIGH DOSE)
     Route: 065
  2. TOREMIFENE [Suspect]
     Active Substance: TOREMIFENE
     Indication: HER2 negative breast cancer
  3. GIMERACIL\OTERACIL\TEGAFUR [Suspect]
     Active Substance: GIMERACIL\OTERACIL\TEGAFUR
     Indication: Hormone therapy
     Dosage: UNK
     Route: 048
  4. GIMERACIL\OTERACIL\TEGAFUR [Suspect]
     Active Substance: GIMERACIL\OTERACIL\TEGAFUR
     Indication: HER2 negative breast cancer

REACTIONS (2)
  - Invasive ductal breast carcinoma [Unknown]
  - Drug ineffective [Unknown]
